FAERS Safety Report 9049103 (Version 1)
Quarter: 2013Q1

REPORT INFORMATION
  Report Type: Spontaneous
  Country: US (occurrence: None)
  Receive Date: 20130130
  Receipt Date: 20130130
  Transmission Date: 20140127
  Serious: Yes (Other)
  Sender: FDA-Public Use
  Company Number: None

PATIENT
  Age: 21 Year
  Sex: Female
  Weight: 51.26 kg

DRUGS (1)
  1. ADDERALL XR 20MGS ACTAVIST [Suspect]
     Indication: ATTENTION DEFICIT/HYPERACTIVITY DISORDER
     Dosage: THREE
     Route: 048
     Dates: start: 20121106, end: 20130121

REACTIONS (7)
  - Headache [None]
  - Insomnia [None]
  - Bruxism [None]
  - Pain in jaw [None]
  - Anxiety [None]
  - Tension [None]
  - Product substitution issue [None]
